FAERS Safety Report 25330450 (Version 1)
Quarter: 2025Q2

REPORT INFORMATION
  Report Type: Spontaneous
  Country: HU (occurrence: HU)
  Receive Date: 20250519
  Receipt Date: 20250519
  Transmission Date: 20250717
  Serious: Yes (Other)
  Sender: ROCHE
  Company Number: HU-ROCHE-10000278970

PATIENT
  Age: 63 Year

DRUGS (1)
  1. OCREVUS [Suspect]
     Active Substance: OCRELIZUMAB
     Indication: Primary progressive multiple sclerosis
     Route: 050

REACTIONS (2)
  - Drug hypersensitivity [Unknown]
  - Weight decreased [Unknown]
